FAERS Safety Report 6422084-1 (Version None)
Quarter: 2009Q4

REPORT INFORMATION
  Report Type: 
  Country: None (occurrence: None)
  Receive Date: 20091030
  Receipt Date: 20091020
  Transmission Date: 20100525
  Serious: Yes (Other)
  Sender: FDA-Public Use
  Company Number: US-JNJFOC-20091006899

PATIENT
  Age: 11 Month
  Sex: Male
  Weight: 9.07 kg

DRUGS (2)
  1. TYLENOL (CAPLET) [Suspect]
     Route: 048
  2. TYLENOL (CAPLET) [Suspect]
     Indication: TEETHING
     Route: 048

REACTIONS (5)
  - INFLUENZA [None]
  - PNEUMONIA [None]
  - PRODUCT EXPIRATION DATE ISSUE [None]
  - PRODUCT LOT NUMBER ISSUE [None]
  - TRANSMISSION OF AN INFECTIOUS AGENT VIA A MEDICINAL PRODUCT [None]
